FAERS Safety Report 7262124-3 (Version None)
Quarter: 2011Q1

REPORT INFORMATION
  Report Type: 
  Country: None (occurrence: None)
  Receive Date: 20110130
  Receipt Date: 20101203
  Transmission Date: 20110831
  Serious: No
  Sender: FDA-Public Use
  Company Number: US-ABBOTT-10P-163-0689195-00

PATIENT
  Sex: Male
  Weight: 63.56 kg

DRUGS (7)
  1. HUMIRA [Suspect]
     Indication: PSORIATIC ARTHROPATHY
     Route: 058
     Dates: start: 20100901
  2. HALOBEASOL [Concomitant]
     Indication: PSORIASIS
     Dosage: VERY SPARINGLY
     Route: 061
  3. HUMIRA [Suspect]
     Indication: PSORIASIS
  4. PERCODAN-DEMI [Concomitant]
     Indication: PSORIATIC ARTHROPATHY
     Dosage: VERY SPARINGLY
     Route: 048
  5. PERCODAN-DEMI [Concomitant]
     Indication: BACK PAIN
  6. BETAMETHASONE [Concomitant]
     Indication: PSORIASIS
     Dosage: VERY SPARINGLY
     Route: 061
  7. STEROID INJECTION [Concomitant]
     Indication: PSORIATIC ARTHROPATHY
     Dosage: UNKNOWN NAME, STRENGTH
     Route: 014

REACTIONS (1)
  - TOOTH ABSCESS [None]
